FAERS Safety Report 8991295 (Version 2)
Quarter: 2013Q1

REPORT INFORMATION
  Report Type: Spontaneous
  Country: IT (occurrence: IT)
  Receive Date: 20121231
  Receipt Date: 20130111
  Transmission Date: 20140127
  Serious: Yes (Hospitalization)
  Sender: FDA-Public Use
  Company Number: IT-ROCHE-1173819

PATIENT
  Age: 68 Year
  Sex: Female

DRUGS (4)
  1. XOLAIR [Suspect]
     Indication: ASTHMA
     Dosage: EVERY 15 DAYS
     Route: 058
     Dates: start: 20100625, end: 20121012
  2. MONTELUKAST [Suspect]
     Indication: ASTHMA
     Route: 048
     Dates: start: 2009, end: 2012
  3. SPIRIVA [Concomitant]
  4. PEPTAZOL [Concomitant]

REACTIONS (1)
  - Allergic granulomatous angiitis [Not Recovered/Not Resolved]
